FAERS Safety Report 8548016-8 (Version None)
Quarter: 2012Q3

REPORT INFORMATION
  Report Type: 
  Country: None (occurrence: None)
  Receive Date: 20120729
  Receipt Date: 20120717
  Transmission Date: 20120928
  Serious: Yes (Other)
  Sender: FDA-Public Use
  Company Number: AR-AMGEN-ARGSP2012027060

PATIENT
  Age: 66 Year
  Sex: Female

DRUGS (1)
  1. ENBREL [Suspect]
     Indication: RHEUMATOID ARTHRITIS
     Dosage: 50 MG, WEEKLY
     Dates: start: 20111003, end: 20120101

REACTIONS (6)
  - PAIN [None]
  - SCIATICA [None]
  - HERPES ZOSTER [None]
  - ARTHRITIS [None]
  - INFLAMMATORY MARKER INCREASED [None]
  - BRONCHITIS [None]
